FAERS Safety Report 17055400 (Version 2)
Quarter: 2020Q1

REPORT INFORMATION
  Report Type: Spontaneous
  Country: AT (occurrence: AT)
  Receive Date: 20191120
  Receipt Date: 20200107
  Transmission Date: 20200409
  Serious: No
  Sender: FDA-Public Use
  Company Number: AT-BEH-2019109622

PATIENT
  Age: 50 Year
  Sex: Female

DRUGS (9)
  1. HIZENTRA [Suspect]
     Active Substance: HUMAN IMMUNOGLOBULIN G
     Dosage: 10 MILLILITER, TOT, DURATION 1 HOUR
     Route: 058
     Dates: start: 20191107, end: 20191107
  2. HIZENTRA [Suspect]
     Active Substance: HUMAN IMMUNOGLOBULIN G
     Dosage: 10 MILLILITER, TOT, DURATION 1 HOUR
     Route: 058
     Dates: start: 20191113, end: 20191113
  3. HIZENTRA [Suspect]
     Active Substance: HUMAN IMMUNOGLOBULIN G
     Indication: HUMORAL IMMUNE DEFECT
     Dosage: 20 MILLILITER, EVERY 4 DAYS
     Route: 065
     Dates: start: 20190405, end: 20191113
  4. HIZENTRA [Suspect]
     Active Substance: HUMAN IMMUNOGLOBULIN G
     Dosage: 20 MILLILITER, TOT, DURATION 1 HOUR
     Route: 058
     Dates: start: 20191014, end: 20191014
  5. HIZENTRA [Suspect]
     Active Substance: HUMAN IMMUNOGLOBULIN G
     Dosage: UNK
     Route: 058
  6. HIZENTRA [Suspect]
     Active Substance: HUMAN IMMUNOGLOBULIN G
     Dosage: UNK
     Route: 058
  7. HIZENTRA [Suspect]
     Active Substance: HUMAN IMMUNOGLOBULIN G
     Dosage: 20 MILLILITER, TOT, DURATION 1 HOUR
     Route: 058
     Dates: start: 20191010, end: 20191010
  8. HIZENTRA [Suspect]
     Active Substance: HUMAN IMMUNOGLOBULIN G
     Dosage: UNK
     Route: 058
  9. HIZENTRA [Suspect]
     Active Substance: HUMAN IMMUNOGLOBULIN G
     Indication: SELECTIVE POLYSACCHARIDE ANTIBODY DEFICIENCY
     Dosage: UNK
     Route: 058

REACTIONS (13)
  - Injection site erythema [Unknown]
  - Peripheral vascular disorder [Unknown]
  - Injection site erythema [Unknown]
  - Fatigue [Unknown]
  - Injection site warmth [Unknown]
  - Injection site pain [Unknown]
  - Injection site warmth [Unknown]
  - Peripheral vascular disorder [Unknown]
  - Injection site warmth [Unknown]
  - Fatigue [Unknown]
  - Injection site pain [Unknown]
  - Injection site erythema [Unknown]
  - Injection site pain [Unknown]

NARRATIVE: CASE EVENT DATE: 201910
